FAERS Safety Report 7455749-3 (Version None)
Quarter: 2011Q2

REPORT INFORMATION
  Report Type: 
  Country: None (occurrence: None)
  Receive Date: 20110503
  Receipt Date: 20110121
  Transmission Date: 20111010
  Serious: Yes (Other)
  Sender: FDA-Public Use
  Company Number: PHHY2011IN24445

PATIENT
  Age: 40 Year
  Sex: Female

DRUGS (5)
  1. SIMULECT [Suspect]
     Indication: RENAL TRANSPLANT
     Dosage: 20 MG, ONCE/SINGLE
     Dates: start: 20101226
  2. TACROLIMUS [Concomitant]
     Dosage: UNK
  3. MYCOPHENOLATE MOFETIL [Concomitant]
  4. PREDNISONE [Concomitant]
     Dosage: 10 MG, UNK
  5. SIMULECT [Suspect]
     Dosage: 20 MG, ONCE/SINGLE
     Dates: start: 20101230

REACTIONS (5)
  - OSTEOPOROSIS [None]
  - BONE DENSITY DECREASED [None]
  - PYELONEPHRITIS CHRONIC [None]
  - OSTEOPENIA [None]
  - KIDNEY TRANSPLANT REJECTION [None]
